FAERS Safety Report 23720967 (Version 1)
Quarter: 2024Q2

REPORT INFORMATION
  Report Type: Spontaneous
  Country: SE (occurrence: SE)
  Receive Date: 20240409
  Receipt Date: 20240409
  Transmission Date: 20240715
  Serious: Yes (Other)
  Sender: FDA-Public Use
  Company Number: SE-009507513-2402SWE004648

PATIENT

DRUGS (5)
  1. GOSERELIN [Suspect]
     Active Substance: GOSERELIN
     Indication: Triple negative breast cancer
     Dosage: UNK
     Route: 058
  2. ZOLADEX [Suspect]
     Active Substance: GOSERELIN ACETATE
     Indication: Triple negative breast cancer
     Dosage: UNK
     Route: 065
  3. KEYTRUDA [Suspect]
     Active Substance: PEMBROLIZUMAB
     Indication: Triple negative breast cancer
     Dosage: 400 MILLIGRAM400.0MG UNKNOWN
     Route: 065
     Dates: start: 20221024, end: 20230905
  4. CARBOPLATIN [Suspect]
     Active Substance: CARBOPLATIN
     Indication: Triple negative breast cancer
     Dosage: UNK
     Route: 065
  5. PACLITAXEL [Suspect]
     Active Substance: PACLITAXEL
     Indication: Triple negative breast cancer
     Dosage: UNK
     Route: 065

REACTIONS (2)
  - Colitis [Unknown]
  - Immune-mediated gastritis [Unknown]

NARRATIVE: CASE EVENT DATE: 20240101
